FAERS Safety Report 5553234-7 (Version None)
Quarter: 2007Q4

REPORT INFORMATION
  Report Type: 
  Country: None (occurrence: None)
  Receive Date: 20071212
  Receipt Date: 20070710
  Transmission Date: 20080405
  Serious: No
  Sender: FDA-Public Use
  Company Number: US-AMGEN-KDL223015

PATIENT
  Sex: Female

DRUGS (14)
  1. ENBREL [Suspect]
     Indication: RHEUMATOID ARTHRITIS
     Route: 058
     Dates: start: 20070419, end: 20070507
  2. ENBREL [Suspect]
     Indication: ANKYLOSING SPONDYLITIS
  3. ENBREL [Suspect]
     Indication: PSORIATIC ARTHROPATHY
  4. ENBREL [Suspect]
     Indication: PSORIASIS
  5. ADVAIR DISKUS 100/50 [Concomitant]
  6. SINGULAIR [Concomitant]
  7. TRICOR [Concomitant]
  8. SYNTHROID [Concomitant]
  9. PREVACID [Concomitant]
  10. ZETIA [Concomitant]
  11. SERZONE [Concomitant]
  12. XANAX [Concomitant]
  13. SOMA [Concomitant]
  14. COMBIVENT [Concomitant]

REACTIONS (5)
  - DECREASED APPETITE [None]
  - FATIGUE [None]
  - FEELING ABNORMAL [None]
  - INFLUENZA LIKE ILLNESS [None]
  - LETHARGY [None]
